FAERS Safety Report 16405035 (Version 1)
Quarter: 2019Q2

REPORT INFORMATION
  Report Type: Spontaneous
  Country: GR (occurrence: GR)
  Receive Date: 20190607
  Receipt Date: 20190607
  Transmission Date: 20190711
  Serious: Yes (Death, Hospitalization, Other)
  Sender: FDA-Public Use
  Company Number: GR-ASTRAZENECA-2019SE83957

PATIENT
  Age: 65 Year
  Sex: Male

DRUGS (1)
  1. IMFINZI [Suspect]
     Active Substance: DURVALUMAB
     Indication: NON-SMALL CELL LUNG CANCER
     Dosage: 10.0MG/KG ONCE/SINGLE ADMINISTRATION
     Route: 042

REACTIONS (3)
  - Acute respiratory distress syndrome [Fatal]
  - Nosocomial infection [Fatal]
  - Cardiopulmonary failure [Fatal]
